FAERS Safety Report 8257591-2 (Version None)
Quarter: 2012Q2

REPORT INFORMATION
  Report Type: 
  Country: None (occurrence: None)
  Receive Date: 20120403
  Receipt Date: 20120328
  Transmission Date: 20120825
  Serious: Yes (Hospitalization, Other)
  Sender: FDA-Public Use
  Company Number: AU-ELI_LILLY_AND_COMPANY-AU201112003071

PATIENT
  Sex: Female
  Weight: 105 kg

DRUGS (16)
  1. BYETTA [Suspect]
     Indication: DIABETES MELLITUS
     Dosage: 5 UG, BID
     Route: 058
     Dates: start: 20110824, end: 20111013
  2. ASPIRIN [Concomitant]
     Dosage: 100 MG, QD
  3. ATORVASTATIN [Concomitant]
     Dosage: 40 MG, QD
  4. NORETHIDRONE [Concomitant]
     Dosage: 5 MG, QD
  5. FUROSEMIDE [Concomitant]
     Dosage: 80 MG, QD
  6. METFORMIN HCL [Concomitant]
     Dosage: 1 G, BID
  7. AMLODIPINE [Concomitant]
     Dosage: 10 MG, QD
  8. AMLODIPINE [Concomitant]
     Dosage: 5 MG, QD
  9. SPIRONOLACTONE [Concomitant]
     Dosage: 25 MG, QD
  10. SPIRONOLACTONE [Concomitant]
     Dosage: 25 MG, BID
  11. GLICLAZIDE [Concomitant]
     Dosage: UNK, UNKNOWN
     Dates: end: 20111004
  12. PANTOPRAZOLE [Concomitant]
     Dosage: 40 MG, QD
  13. INSULIN GLARGINE [Concomitant]
     Dosage: 30 U, EACH EVENING
  14. GLICLAZIDE [Concomitant]
     Dosage: 60 MG, QD
  15. RAMIPRIL [Concomitant]
     Dosage: 10 MG, QD
  16. NOVORAPID [Concomitant]
     Dosage: 10 U, UNK

REACTIONS (4)
  - PANCREATITIS CHRONIC [None]
  - DECREASED APPETITE [None]
  - PANCREATITIS ACUTE [None]
  - WEIGHT DECREASED [None]
